FAERS Safety Report 8911291 (Version 3)
Quarter: 2015Q2

REPORT INFORMATION
  Report Type: Spontaneous
  Country: US (occurrence: US)
  Receive Date: 20121116
  Receipt Date: 20150413
  Transmission Date: 20150821
  Serious: No
  Sender: FDA-Public Use
  Company Number: US-GLAXOSMITHKLINE-A0995353A

PATIENT
  Age: 63 Year
  Sex: Female
  Weight: 92.97 kg

DRUGS (13)
  1. MUPIROCIN. [Concomitant]
     Active Substance: MUPIROCIN
  2. VOTRIENT [Suspect]
     Active Substance: PAZOPANIB HYDROCHLORIDE
     Indication: RENAL CANCER
     Dosage: 200 MG TABLETS
     Route: 065
     Dates: start: 20120904
  3. OXYCODONE-ACETAMINOPHEN [Concomitant]
     Active Substance: ACETAMINOPHEN\OXYCODONE HYDROCHLORIDE
  4. MONTELUKAST SODIUM. [Concomitant]
     Active Substance: MONTELUKAST SODIUM
  5. NYSTATIN POWDER [Concomitant]
  6. VOTRIENT [Suspect]
     Active Substance: PAZOPANIB HYDROCHLORIDE
     Dosage: 800 MG, QD
     Dates: end: 20150407
  7. BENZONATATE. [Concomitant]
     Active Substance: BENZONATATE
  8. HCTZ [Concomitant]
     Active Substance: HYDROCHLOROTHIAZIDE
  9. KLOR-CON [Concomitant]
     Active Substance: POTASSIUM CHLORIDE
  10. APAP [Suspect]
     Active Substance: ACETAMINOPHEN
     Indication: BACK PAIN
     Route: 065
  11. VOTRIENT [Suspect]
     Active Substance: PAZOPANIB HYDROCHLORIDE
     Indication: HEPATIC CANCER
     Dosage: UNK
     Dates: start: 20120904
  12. VOTRIENT [Suspect]
     Active Substance: PAZOPANIB HYDROCHLORIDE
     Indication: MALIGNANT URINARY TRACT NEOPLASM
     Dosage: UNK
     Dates: start: 20120904
  13. AMLODIPINE [Concomitant]
     Active Substance: AMLODIPINE BESYLATE

REACTIONS (13)
  - Emotional disorder [Unknown]
  - Back pain [Unknown]
  - Fatigue [Unknown]
  - Heart rate increased [Unknown]
  - Blood pressure increased [Recovering/Resolving]
  - Diarrhoea [Unknown]
  - Pain [Unknown]
  - Hepatic enzyme increased [Recovered/Resolved]
  - Hair colour changes [Unknown]
  - Alanine aminotransferase increased [Unknown]
  - Headache [Unknown]
  - Aspartate aminotransferase increased [Unknown]
  - Arthralgia [Unknown]

NARRATIVE: CASE EVENT DATE: 20150407
